FAERS Safety Report 8098334-5 (Version None)
Quarter: 2012Q1

REPORT INFORMATION
  Report Type: 
  Country: None (occurrence: None)
  Receive Date: 20120131
  Receipt Date: 20120127
  Transmission Date: 20120608
  Serious: No
  Sender: FDA-Public Use
  Company Number: US-TEVA-319827USA

PATIENT
  Sex: Female
  Weight: 67.192 kg

DRUGS (3)
  1. TRIAMTERENE [Concomitant]
     Indication: HYPERTENSION
  2. MIDRID                             /00450801/ [Concomitant]
     Indication: HEADACHE
     Route: 048
  3. AZILECT [Suspect]
     Indication: PARKINSON'S DISEASE
     Route: 048
     Dates: start: 20090101

REACTIONS (2)
  - ROAD TRAFFIC ACCIDENT [None]
  - BACK INJURY [None]
